FAERS Safety Report 23992711 (Version 1)
Quarter: 2024Q2

REPORT INFORMATION
  Report Type: Other
  Country: AU (occurrence: AU)
  Receive Date: 20240620
  Receipt Date: 20240620
  Transmission Date: 20240716
  Serious: Yes (Hospitalization, Other)
  Sender: FDA-Public Use
  Company Number: AU-Bion-013277

PATIENT

DRUGS (4)
  1. VALPROIC ACID [Suspect]
     Active Substance: VALPROIC ACID
     Indication: Product used for unknown indication
  2. QUETIAPINE [Concomitant]
     Active Substance: QUETIAPINE
     Indication: Product used for unknown indication
  3. ESCITALOPRAM [Concomitant]
     Active Substance: ESCITALOPRAM OXALATE
     Indication: Product used for unknown indication
  4. ORPHENADRINE [Concomitant]
     Active Substance: ORPHENADRINE
     Indication: Product used for unknown indication
     Dosage: IMMEDIATE?RELEASE

REACTIONS (3)
  - Somnolence [Unknown]
  - Delirium [Unknown]
  - Tachycardia [Unknown]
